FAERS Safety Report 6162232-4 (Version None)
Quarter: 2009Q2

REPORT INFORMATION
  Report Type: 
  Country: None (occurrence: None)
  Receive Date: 20090421
  Receipt Date: 20090417
  Transmission Date: 20091009
  Serious: Yes (Death, Hospitalization)
  Sender: FDA-Public Use
  Company Number: CO-JNJFOC-20090404336

PATIENT
  Age: 68 Year
  Sex: Female

DRUGS (2)
  1. RISPERDAL [Suspect]
     Indication: BIPOLAR DISORDER
     Route: 065
  2. LITLO [Suspect]
     Indication: BIPOLAR DISORDER
     Route: 065

REACTIONS (3)
  - CONFUSIONAL STATE [None]
  - DEATH [None]
  - HOSPITALISATION [None]
